FAERS Safety Report 18414232 (Version 2)
Quarter: 2020Q4

REPORT INFORMATION
  Report Type: Spontaneous
  Country: US (occurrence: US)
  Receive Date: 20201022
  Receipt Date: 20201125
  Transmission Date: 20210114
  Serious: No
  Sender: FDA-Public Use
  Company Number: US-BAYER-2020-227534

PATIENT
  Age: 4 Decade
  Sex: Female

DRUGS (1)
  1. MIRENA [Suspect]
     Active Substance: LEVONORGESTREL
     Indication: CONTRACEPTION
     Dosage: 20 ?G PER DAY CONTINUOUSLY
     Route: 015
     Dates: start: 20190104, end: 20200626

REACTIONS (3)
  - Medical device pain [None]
  - Penile pain [None]
  - Abdominal pain lower [Recovered/Resolved]
